FAERS Safety Report 17508988 (Version 2)
Quarter: 2020Q1

REPORT INFORMATION
  Report Type: Spontaneous
  Country: IN (occurrence: IN)
  Receive Date: 20200306
  Receipt Date: 20200311
  Transmission Date: 20200409
  Serious: Yes (Death)
  Sender: FDA-Public Use
  Company Number: IN-PFIZER INC-2019389460

PATIENT
  Age: 67 Year
  Sex: Female

DRUGS (2)
  1. PALBACE [Suspect]
     Active Substance: PALBOCICLIB
     Dosage: 75 MG, 1X/DAY
     Route: 048
  2. PALBACE [Suspect]
     Active Substance: PALBOCICLIB
     Indication: BREAST CANCER METASTATIC
     Dosage: 125 MG, 1X/DAY
     Route: 048
     Dates: start: 20190829

REACTIONS (7)
  - Protein deficiency [Unknown]
  - Cough [Unknown]
  - Blood calcium decreased [Unknown]
  - Death [Fatal]
  - Nasopharyngitis [Unknown]
  - Blood bicarbonate decreased [Unknown]
  - Blood sodium decreased [Unknown]
